FAERS Safety Report 16398220 (Version 1)
Quarter: 2019Q2

REPORT INFORMATION
  Report Type: Report from Study
  Country: IT (occurrence: IT)
  Receive Date: 20190606
  Receipt Date: 20190606
  Transmission Date: 20190711
  Serious: Yes (Hospitalization)
  Sender: FDA-Public Use
  Company Number: IT-PFIZER INC-2019242018

PATIENT
  Age: 64 Year
  Sex: Female

DRUGS (4)
  1. SERTRALINE HYDROCHLORIDE. [Concomitant]
     Active Substance: SERTRALINE HYDROCHLORIDE
     Dosage: 200 MG, UNK
     Route: 048
  2. TAVOR (LORAZEPAM) [Suspect]
     Active Substance: LORAZEPAM
     Indication: INTENTIONAL OVERDOSE
     Dosage: 20 DF, TOTAL
     Route: 048
     Dates: start: 20190415, end: 20190415
  3. QUETIAPINE. [Suspect]
     Active Substance: QUETIAPINE
     Indication: INTENTIONAL OVERDOSE
     Dosage: 750 MG, TOTAL
     Route: 048
     Dates: start: 20190415, end: 20190415
  4. ARIPIPRAZOLE. [Concomitant]
     Active Substance: ARIPIPRAZOLE
     Dosage: 20 MG, UNK
     Route: 048

REACTIONS (3)
  - Sopor [Recovered/Resolved]
  - Sedation [Recovered/Resolved]
  - Intentional overdose [Recovered/Resolved]

NARRATIVE: CASE EVENT DATE: 20190415
